FAERS Safety Report 5016345-0 (Version None)
Quarter: 2006Q2

REPORT INFORMATION
  Report Type: 
  Country: None (occurrence: None)
  Receive Date: 20060414
  Receipt Date: 20060221
  Transmission Date: 20061013
  Serious: No
  Sender: FDA-Public Use
  Company Number: 2006026943

PATIENT
  Age: 74 Year
  Sex: Male
  Weight: 70.7611 kg

DRUGS (8)
  1. MACUGEN [Suspect]
     Indication: MACULAR DEGENERATION
     Dosage: (1 IN 6 WK),INTRAVITREOUS
     Dates: start: 20050101
  2. PRINIVIL [Concomitant]
  3. ATENOLOL [Concomitant]
  4. LIPITOR [Concomitant]
  5. FOLIC ACID [Concomitant]
  6. ASPIRIN [Concomitant]
  7. GLUCOSAMINE (GLUCOSAMINE) [Concomitant]
  8. ALL OTHER THERAPEUTIC PRODUCTS (ALL OTHER THERAPEUTIC PRODUCTS) [Concomitant]

REACTIONS (3)
  - FATIGUE [None]
  - LACRIMATION INCREASED [None]
  - OCULAR HYPERAEMIA [None]
